FAERS Safety Report 16674422 (Version 4)
Quarter: 2019Q3

REPORT INFORMATION
  Report Type: Spontaneous
  Country: US (occurrence: US)
  Receive Date: 20190806
  Receipt Date: 20190926
  Transmission Date: 20191004
  Serious: No
  Sender: FDA-Public Use
  Company Number: US-PFIZER INC-2019328388

PATIENT
  Age: 31 Year
  Sex: Female
  Weight: 78 kg

DRUGS (1)
  1. LYRICA [Suspect]
     Active Substance: PREGABALIN
     Indication: FIBROMYALGIA
     Dosage: 150 MG, 2X/DAY
     Route: 048

REACTIONS (3)
  - Back pain [Recovered/Resolved]
  - Inflammation [Recovered/Resolved]
  - Drug ineffective [Recovered/Resolved]
